FAERS Safety Report 6696377-7 (Version None)
Quarter: 2010Q2

REPORT INFORMATION
  Report Type: 
  Country: None (occurrence: None)
  Receive Date: 20100426
  Receipt Date: 20100415
  Transmission Date: 20101027
  Serious: No
  Sender: FDA-Public Use
  Company Number: AU-JNJFOC-20100404489

PATIENT
  Sex: Female

DRUGS (4)
  1. DURAGESIC-100 [Suspect]
     Indication: BACK PAIN
  2. DURAGESIC-100 [Suspect]
  3. DURAGESIC-100 [Suspect]
     Indication: ARTHRALGIA
  4. DURAGESIC-100 [Suspect]

REACTIONS (3)
  - CONSTIPATION [None]
  - DRUG DOSE OMISSION [None]
  - TREATMENT NONCOMPLIANCE [None]
